FAERS Safety Report 21090081 (Version 2)
Quarter: 2022Q3

REPORT INFORMATION
  Report Type: Spontaneous
  Country: DE (occurrence: DE)
  Receive Date: 20220715
  Receipt Date: 20220720
  Transmission Date: 20221027
  Serious: Yes (Hospitalization, Other)
  Sender: FDA-Public Use
  Company Number: DE-009507513-2207DEU003003

PATIENT
  Age: 40 Year
  Sex: Female

DRUGS (1)
  1. KEYTRUDA [Suspect]
     Active Substance: PEMBROLIZUMAB
     Indication: Breast cancer
     Dosage: UNK

REACTIONS (4)
  - Pyelonephritis [Unknown]
  - Breast conserving surgery [Unknown]
  - Adverse event [Unknown]
  - Nephritis [Unknown]

NARRATIVE: CASE EVENT DATE: 20220713
